FAERS Safety Report 5733679-2 (Version None)
Quarter: 2008Q2

REPORT INFORMATION
  Report Type: 
  Country: None (occurrence: None)
  Receive Date: 20080509
  Receipt Date: 20080314
  Transmission Date: 20081010
  Serious: No
  Sender: FDA-Public Use
  Company Number: A0715524A

PATIENT
  Age: 49 Year
  Sex: Male

DRUGS (3)
  1. ALTABAX [Suspect]
     Indication: STAPHYLOCOCCAL INFECTION
     Route: 061
     Dates: start: 20080311, end: 20080311
  2. GLYBURIDE [Concomitant]
  3. METFORMIN HCL [Concomitant]

REACTIONS (5)
  - APPLICATION SITE ERYTHEMA [None]
  - APPLICATION SITE PAIN [None]
  - APPLICATION SITE VESICLES [None]
  - FEELING HOT [None]
  - OEDEMA PERIPHERAL [None]
